FAERS Safety Report 6256719-3 (Version None)
Quarter: 2009Q3

REPORT INFORMATION
  Report Type: 
  Country: None (occurrence: None)
  Receive Date: 20090706
  Receipt Date: 20090625
  Transmission Date: 20100115
  Serious: Yes (Hospitalization)
  Sender: FDA-Public Use
  Company Number: US-BIOGENIDEC-2009BI019934

PATIENT
  Age: 28 Year
  Sex: Female

DRUGS (2)
  1. TYSABRI [Suspect]
     Indication: MULTIPLE SCLEROSIS
     Route: 042
     Dates: start: 20080911, end: 20080911
  2. TYSABRI [Suspect]
     Route: 042
     Dates: start: 20090507

REACTIONS (5)
  - BLOOD PRESSURE INCREASED [None]
  - CATHETER RELATED COMPLICATION [None]
  - HEART RATE INCREASED [None]
  - PROCEDURAL COMPLICATION [None]
  - STAPHYLOCOCCAL INFECTION [None]
